FAERS Safety Report 24284826 (Version 1)
Quarter: 2024Q3

REPORT INFORMATION
  Report Type: Spontaneous
  Country: US (occurrence: US)
  Receive Date: 20240905
  Receipt Date: 20240905
  Transmission Date: 20241017
  Serious: No
  Sender: TAKEDA
  Company Number: US-TAKEDA-2024TUS087323

PATIENT
  Sex: Female
  Weight: 64 kg

DRUGS (7)
  1. MOTEGRITY [Suspect]
     Active Substance: PRUCALOPRIDE SUCCINATE
     Indication: Constipation
     Dosage: 2 MILLIGRAM
     Route: 065
  2. AMITIZA [Suspect]
     Active Substance: LUBIPROSTONE
     Indication: Constipation
     Dosage: UNK
     Route: 065
     Dates: start: 2006
  3. AMLODIPINE [Concomitant]
     Active Substance: AMLODIPINE BESYLATE
     Indication: Blood pressure abnormal
  4. ATORVASTATIN [Concomitant]
     Active Substance: ATORVASTATIN
     Indication: Blood cholesterol abnormal
  5. LOSARTAN [Concomitant]
     Active Substance: LOSARTAN\LOSARTAN POTASSIUM
  6. HYOSCYAMINE [Concomitant]
     Active Substance: HYOSCYAMINE
  7. GLUCOSAMINE [Concomitant]
     Active Substance: GLUCOSAMINE

REACTIONS (9)
  - Insomnia [Unknown]
  - Brain fog [Unknown]
  - COVID-19 [Unknown]
  - Job dissatisfaction [Unknown]
  - Thinking abnormal [Unknown]
  - Anxiety [Unknown]
  - Product availability issue [Unknown]
  - Product dispensing error [Unknown]
  - Wrong technique in product usage process [Unknown]
